FAERS Safety Report 6271118-6 (Version None)
Quarter: 2009Q3

REPORT INFORMATION
  Report Type: 
  Country: None (occurrence: None)
  Receive Date: 20090716
  Receipt Date: 20090709
  Transmission Date: 20100115
  Serious: Yes (Other)
  Sender: FDA-Public Use
  Company Number: CA-AMGEN-KDL352730

PATIENT
  Sex: Male
  Weight: 97.6 kg

DRUGS (1)
  1. ENBREL [Suspect]
     Indication: PSORIASIS
     Dates: start: 20070107, end: 20080622

REACTIONS (1)
  - THERAPEUTIC RESPONSE DECREASED [None]
